FAERS Safety Report 6006321-3 (Version None)
Quarter: 2008Q4

REPORT INFORMATION
  Report Type: 
  Country: None (occurrence: None)
  Receive Date: 20081217
  Receipt Date: 20081216
  Transmission Date: 20090506
  Serious: Yes (Hospitalization)
  Sender: FDA-Public Use
  Company Number: A0760089A

PATIENT
  Age: 74 Year
  Sex: Female
  Weight: 118.2 kg

DRUGS (11)
  1. AVANDIA [Suspect]
     Indication: DIABETES MELLITUS
     Dosage: 8MG PER DAY
     Route: 048
     Dates: start: 20040501, end: 20081211
  2. ALLOPURINOL [Concomitant]
     Route: 065
  3. UNKNOWN BLOOD PRESSURE MEDICATION [Concomitant]
     Route: 065
  4. HYDROMORPHONE HCL [Concomitant]
     Route: 065
  5. DIURETIC [Concomitant]
     Route: 065
  6. FOSAMAX [Concomitant]
     Dosage: 70MG WEEKLY
     Route: 065
  7. MULTI-VITAMIN [Concomitant]
     Route: 065
  8. VITAMIN K TAB [Concomitant]
     Route: 065
  9. CALCIUM [Concomitant]
     Route: 065
  10. OMEPRAZOLE [Concomitant]
     Route: 065
  11. MIACALCIN [Concomitant]
     Route: 045
     Dates: start: 20020101, end: 20080101

REACTIONS (5)
  - ANKLE FRACTURE [None]
  - FALL [None]
  - HUMERUS FRACTURE [None]
  - RIB FRACTURE [None]
  - UPPER LIMB FRACTURE [None]
